FAERS Safety Report 11308378 (Version 1)
Quarter: 2015Q3

REPORT INFORMATION
  Report Type: Other
  Country: GB (occurrence: GB)
  Receive Date: 20150724
  Receipt Date: 20150724
  Transmission Date: 20151125
  Serious: Yes (Death)
  Sender: FDA-Public Use
  Company Number: GB-MYLANLABS-2014M1011159

PATIENT

DRUGS (7)
  1. MIRTAZAPINE. [Concomitant]
     Active Substance: MIRTAZAPINE
     Indication: DEPRESSION
     Dosage: 45 MG, QD (LONG TERM)
     Route: 048
  2. SIMVASTATIN. [Suspect]
     Active Substance: SIMVASTATIN
     Indication: HYPERCHOLESTEROLAEMIA
     Dosage: 40 MG, QD (STOPPED AT DEATH)
     Route: 048
     Dates: end: 20140504
  3. AMLODIPINE [Suspect]
     Active Substance: AMLODIPINE BESYLATE
     Indication: HYPERTENSION
     Dosage: 10 MG, QD (LONG TERM,  STOPPED AT DEATH)
     Route: 048
     Dates: end: 20140504
  4. THIAMINE. [Concomitant]
     Active Substance: THIAMINE
     Dosage: 200 MG, QD (LONG TERM)
     Route: 048
  5. CARBAMAZEPINE. [Suspect]
     Active Substance: CARBAMAZEPINE
     Indication: SEIZURE
     Dosage: 900 MG, QD (STOPPED AT DEATH)
     Route: 048
     Dates: start: 2002, end: 20140504
  6. RAMIPRIL. [Suspect]
     Active Substance: RAMIPRIL
     Indication: HYPERTENSION
     Dosage: 2.5 MG, QD (LONG TERM, STOPPED AT DEATH)
     Route: 048
     Dates: end: 20140504
  7. FERROUS SULFATE [Concomitant]
     Active Substance: FERROUS SULFATE\FERROUS SULFATE, DRIED
     Indication: ANAEMIA
     Dosage: 200 MG, QD (LONG TERM)
     Route: 048

REACTIONS (1)
  - Hepatic failure [Fatal]
